FAERS Safety Report 9509386 (Version 2)
Quarter: 2013Q3

REPORT INFORMATION
  Report Type: Spontaneous
  Country: US (occurrence: US)
  Receive Date: 20130909
  Receipt Date: 20130924
  Transmission Date: 20140515
  Serious: Yes (Hospitalization)
  Sender: FDA-Public Use
  Company Number: US-ROCHE-1271163

PATIENT
  Age: 64 Year
  Sex: Female

DRUGS (16)
  1. XOLAIR [Suspect]
     Indication: ASTHMA
     Route: 058
     Dates: start: 20130522
  2. HUMALOG MIX75/25 [Concomitant]
     Dosage: DRUG REPORTED AS : HUMALOG 75/25
     Route: 065
  3. SINGULAIR [Concomitant]
  4. PREDNISONE [Concomitant]
  5. AMLODIPINE [Concomitant]
  6. LIPITOR [Concomitant]
  7. DIOVAN HCT [Concomitant]
  8. VENTOLIN [Concomitant]
  9. ADVAIR [Concomitant]
  10. NEXIUM [Concomitant]
  11. AMITRIPTYLINE HYDROCHLORIDE [Concomitant]
  12. ALBUTEROL INHALATION SOLUTION [Concomitant]
  13. SPIRIVA [Concomitant]
  14. GAMUNEX [Concomitant]
  15. QVAR [Concomitant]
  16. RANEXA [Concomitant]
     Dosage: DRUG REPORTED AS : RANEXA ER
     Route: 065

REACTIONS (2)
  - Asthma [Unknown]
  - Cystitis [Unknown]
